FAERS Safety Report 17143090 (Version 1)
Quarter: 2019Q4

REPORT INFORMATION
  Report Type: Spontaneous
  Country: US (occurrence: US)
  Receive Date: 20191210
  Receipt Date: 20191210
  Transmission Date: 20200122
  Serious: Yes (Death)
  Sender: FDA-Public Use
  Company Number: None

PATIENT
  Age: 60 Year
  Sex: Female

DRUGS (2)
  1. J AND J BABY POWDER (ZINC OXIDE) [Suspect]
     Active Substance: ZINC OXIDE
     Indication: PRODUCT USED FOR UNKNOWN INDICATION
     Route: 061
     Dates: start: 1970, end: 2014
  2. SHOWER TO SHOWER POWDER [Concomitant]
     Active Substance: TALC
     Route: 061
     Dates: start: 1970, end: 2014

REACTIONS (2)
  - Product formulation issue [None]
  - Injury [None]

NARRATIVE: CASE EVENT DATE: 201509
